FAERS Safety Report 9953389 (Version 1)
Quarter: 2014Q1

REPORT INFORMATION
  Report Type: Report from Study
  Country: US (occurrence: US)
  Receive Date: 20140304
  Receipt Date: 20140304
  Transmission Date: 20141002
  Serious: No
  Sender: FDA-Public Use
  Company Number: US-ABBVIE-13P-163-1074725-00

PATIENT
  Age: 52 Year
  Sex: Female
  Weight: 113.5 kg

DRUGS (9)
  1. HUMIRA [Suspect]
     Indication: CROHN^S DISEASE
     Dates: start: 2009, end: 2011
  2. HUMIRA [Suspect]
     Dates: start: 2012
  3. LOMOTIL [Concomitant]
     Indication: DIARRHOEA
  4. CIPROFLOXACIN [Concomitant]
     Indication: CROHN^S DISEASE
  5. POTASSIUM [Concomitant]
     Indication: HYPOKALAEMIA
  6. LEVOTHYROXINE [Concomitant]
     Indication: HYPOTHYROIDISM
  7. AZATHIOPRINE [Concomitant]
     Indication: CROHN^S DISEASE
  8. VITAMIN B12 [Concomitant]
     Indication: HYPOVITAMINOSIS
  9. ASPIRIN [Concomitant]
     Indication: CARDIAC DISORDER

REACTIONS (1)
  - Diarrhoea [Not Recovered/Not Resolved]
